FAERS Safety Report 13768587 (Version 1)
Quarter: 2017Q3

REPORT INFORMATION
  Report Type: Spontaneous
  Country: US (occurrence: US)
  Receive Date: 20170719
  Receipt Date: 20170719
  Transmission Date: 20171127
  Serious: Yes (Hospitalization)
  Sender: FDA-Public Use
  Company Number: None

PATIENT
  Age: 19 Year
  Sex: Male
  Weight: 130.3 kg

DRUGS (7)
  1. DESMOPRESSIN [Concomitant]
     Active Substance: DESMOPRESSIN
  2. IBUPROFEN. [Concomitant]
     Active Substance: IBUPROFEN
  3. ZIPRASIDONE. [Suspect]
     Active Substance: ZIPRASIDONE
     Indication: ADJUSTMENT DISORDER
     Dosage: ?          OTHER DOSE:MG;?
     Route: 048
  4. ALBUTEROL HFA [Concomitant]
     Active Substance: ALBUTEROL SULFATE
  5. SERTRALINE [Concomitant]
     Active Substance: SERTRALINE HYDROCHLORIDE
  6. ZIPRASIDONE. [Suspect]
     Active Substance: ZIPRASIDONE
     Indication: CONDUCT DISORDER
     Dosage: ?          OTHER DOSE:MG;?
     Route: 048
  7. MIRALAX [Concomitant]
     Active Substance: POLYETHYLENE GLYCOL 3350

REACTIONS (3)
  - Hyperglycaemic hyperosmolar nonketotic syndrome [None]
  - Abdominal pain upper [None]
  - Blood glucose increased [None]

NARRATIVE: CASE EVENT DATE: 20170717
